FAERS Safety Report 9788965 (Version 2)
Quarter: 2014Q1

REPORT INFORMATION
  Report Type: Spontaneous
  Country: US (occurrence: US)
  Receive Date: 20131230
  Receipt Date: 20140311
  Transmission Date: 20141002
  Serious: No
  Sender: FDA-Public Use
  Company Number: US-TEVA-451934USA

PATIENT
  Sex: Female

DRUGS (4)
  1. PROAIR HFA [Suspect]
  2. SYMBICORT [Concomitant]
  3. CELEBREX [Concomitant]
  4. ALBUTEROL [Concomitant]

REACTIONS (3)
  - Dyspnoea [Recovered/Resolved]
  - Drug ineffective [Recovered/Resolved]
  - Dysgeusia [Unknown]
